FAERS Safety Report 5937442-9 (Version None)
Quarter: 2008Q4

REPORT INFORMATION
  Report Type: 
  Country: None (occurrence: None)
  Receive Date: 20081031
  Receipt Date: 20081028
  Transmission Date: 20090506
  Serious: Yes (Hospitalization)
  Sender: FDA-Public Use
  Company Number: A0754141A

PATIENT
  Age: 37 Year
  Sex: Male

DRUGS (2)
  1. DEXEDRINE [Suspect]
     Indication: NARCOLEPSY
     Dosage: 45MG THREE TIMES PER DAY
     Route: 065
  2. SELEGILINE HCL [Concomitant]
     Dosage: 10MG TWICE PER DAY
     Route: 065

REACTIONS (3)
  - BRAIN INJURY [None]
  - DRUG ADMINISTRATION ERROR [None]
  - OVERDOSE [None]
